FAERS Safety Report 4518164-8 (Version None)
Quarter: 2004Q4

REPORT INFORMATION
  Report Type: 
  Country: None (occurrence: None)
  Receive Date: 20041130
  Receipt Date: 20041111
  Transmission Date: 20050328
  Serious: Yes (Death)
  Sender: FDA-Public Use
  Company Number: A03200403818

PATIENT
  Age: 44 Year
  Sex: Male

DRUGS (11)
  1. AMBIEN -ZOLPIUDEM TARTRATE - TABLET - UNIT DOSE: UNKNOWN [Suspect]
     Dosage: ORAL
     Route: 048
  2. FENTANYL - PATCH - UNIT DOSE: UNKNOWN [Suspect]
     Dosage: TOPICAL
     Route: 061
  3. CLONAZEPAM - TABLET - UNIT DOSE: UNKNOWN [Suspect]
     Dosage: ORAL
     Route: 048
  4. RISPERIDONE - TABLET - UNIT DOSE: UNKNOWN [Suspect]
     Dosage: ORAL
     Route: 048
  5. LAMIVUDINE/ZIDOVUDINE - TABLET - UNIT DOSE: UNKNOWN [Suspect]
     Dosage: ORAL
     Route: 048
  6. PROGESTIN INJ [Suspect]
     Dosage: ORAL
     Route: 048
  7. ALBUTEROL [Suspect]
     Dosage: RESPIRATORY (INHALATION)
  8. ANTICONVULSANT NOS - TABLET - UNIT DOSE: UNKNOWN [Suspect]
     Dosage: ORAL
     Route: 048
  9. ANGIOTENSIN RECEPTOR ANTAGONIS NOS - TABLET - UNIT DOSE: UNKNOWN [Suspect]
     Dosage: ORAL
     Route: 048
  10. CITALOPRAM - TABLET - UNIT DOSE: UNKNOWN [Suspect]
     Dosage: ORAL
     Route: 048
  11. VALDECOXIB [Suspect]

REACTIONS (7)
  - BLOOD CREATINE INCREASED [None]
  - BLOOD CREATINE PHOSPHOKINASE INCREASED [None]
  - COMA [None]
  - DRUG INEFFECTIVE [None]
  - HYPOGLYCAEMIA [None]
  - KUSSMAUL RESPIRATION [None]
  - OVERDOSE [None]
